FAERS Safety Report 4891189-9 (Version None)
Quarter: 2006Q1

REPORT INFORMATION
  Report Type: 
  Country: None (occurrence: None)
  Receive Date: 20060125
  Receipt Date: 20051130
  Transmission Date: 20060701
  Serious: Yes (Other)
  Sender: FDA-Public Use
  Company Number: NZ-GLAXOSMITHKLINE-B0402167A

PATIENT
  Age: 43 Year
  Sex: Male
  Weight: 87 kg

DRUGS (1)
  1. PAROXETINE HYDROCHLORIDE [Suspect]
     Indication: DEPRESSION

REACTIONS (13)
  - ANXIETY [None]
  - BEDRIDDEN [None]
  - DEATH OF FRIEND [None]
  - DEPRESSION [None]
  - DYSURIA [None]
  - HYPERHIDROSIS [None]
  - INCOHERENT [None]
  - LOSS OF CONSCIOUSNESS [None]
  - MYDRIASIS [None]
  - STRESS [None]
  - TINNITUS [None]
  - TREMOR [None]
  - VERTIGO [None]
